FAERS Safety Report 21227913 (Version 1)
Quarter: 2022Q3

REPORT INFORMATION
  Report Type: Spontaneous
  Country: DE (occurrence: DE)
  Receive Date: 20220818
  Receipt Date: 20220818
  Transmission Date: 20221026
  Serious: Yes (Life-Threatening, Other)
  Sender: FDA-Public Use
  Company Number: None

PATIENT
  Age: 84 Year
  Sex: Female
  Weight: 80 kg

DRUGS (4)
  1. MEROPENEM [Suspect]
     Active Substance: MEROPENEM
     Indication: Peritonitis
     Dosage: 4G - 2G
     Route: 042
     Dates: start: 20220728, end: 20220802
  2. LINEZOLID [Concomitant]
     Active Substance: LINEZOLID
     Indication: Peritonitis
     Dosage: 600 MG, EVERY 12H (HOURS)
     Route: 042
     Dates: start: 20220728, end: 20220802
  3. CASPOFUNGIN [Concomitant]
     Active Substance: CASPOFUNGIN
     Indication: Peritonitis
     Dosage: 70-50MG
     Route: 042
     Dates: start: 20220728
  4. METAMIZOLE [Concomitant]
     Active Substance: METAMIZOLE
     Dosage: 0.5 G, EVERY 8 H (HOURS)
     Route: 042
     Dates: start: 20220728

REACTIONS (7)
  - Septic shock [Not Recovered/Not Resolved]
  - Circulatory collapse [Not Recovered/Not Resolved]
  - Erythema [Not Recovered/Not Resolved]
  - Leukocytosis [Not Recovered/Not Resolved]
  - Pruritus [Not Recovered/Not Resolved]
  - Rash [Not Recovered/Not Resolved]
  - Dermatitis allergic [Unknown]

NARRATIVE: CASE EVENT DATE: 20220101
